FAERS Safety Report 5966951-1 (Version None)
Quarter: 2008Q4

REPORT INFORMATION
  Report Type: 
  Country: None (occurrence: None)
  Receive Date: 20081125
  Receipt Date: 20081028
  Transmission Date: 20090506
  Serious: No
  Sender: FDA-Public Use
  Company Number: US-AMGEN-KDL315938

PATIENT
  Sex: Female

DRUGS (2)
  1. ENBREL [Suspect]
     Indication: RHEUMATOID ARTHRITIS
     Route: 058
     Dates: start: 20080829
  2. METHOTREXATE [Concomitant]

REACTIONS (3)
  - ARTHRALGIA [None]
  - SYNOVIAL CYST [None]
  - SYNOVITIS [None]
